FAERS Safety Report 8019596-6 (Version None)
Quarter: 2012Q1

REPORT INFORMATION
  Report Type: 
  Country: None (occurrence: None)
  Receive Date: 20120103
  Receipt Date: 20111221
  Transmission Date: 20120608
  Serious: Yes (Hospitalization)
  Sender: FDA-Public Use
  Company Number: US-GLAXOSMITHKLINE-A0829375A

PATIENT
  Age: 47 Year
  Sex: Male
  Weight: 215.9 kg

DRUGS (1)
  1. AVANDIA [Suspect]
     Indication: DIABETES MELLITUS
     Route: 048
     Dates: start: 20060701, end: 20080101

REACTIONS (9)
  - PAIN [None]
  - NEUROPATHY PERIPHERAL [None]
  - ISCHAEMIC CARDIOMYOPATHY [None]
  - EJECTION FRACTION ABNORMAL [None]
  - ATRIAL FIBRILLATION [None]
  - WEIGHT INCREASED [None]
  - CARDIOMEGALY [None]
  - CONDITION AGGRAVATED [None]
  - PULMONARY CONGESTION [None]
